FAERS Safety Report 25820396 (Version 3)
Quarter: 2025Q4

REPORT INFORMATION
  Report Type: Spontaneous
  Country: CA (occurrence: CA)
  Receive Date: 20250919
  Receipt Date: 20251018
  Transmission Date: 20260117
  Serious: Yes (Death, Hospitalization)
  Sender: UNITED THERAPEUTICS
  Company Number: CA-UNITED THERAPEUTICS-UNT-2025-017722

PATIENT
  Sex: Female

DRUGS (2)
  1. REMODULIN [Suspect]
     Active Substance: TREPROSTINIL
     Indication: Pulmonary arterial hypertension
     Dosage: UNK, CONTINUING
  2. LASIX [Suspect]
     Active Substance: FUROSEMIDE
     Indication: Hypervolaemia
     Dosage: UNK

REACTIONS (8)
  - General physical health deterioration [Fatal]
  - Hypervolaemia [Unknown]
  - Muscular weakness [Unknown]
  - Diet noncompliance [Unknown]
  - Infusion site discomfort [Unknown]
  - Device maintenance issue [Unknown]
  - Device dislocation [Unknown]
  - Product dose omission issue [Unknown]

NARRATIVE: CASE EVENT DATE: 20250101
